FAERS Safety Report 7546171-X (Version None)
Quarter: 2011Q2

REPORT INFORMATION
  Report Type: 
  Country: None (occurrence: None)
  Receive Date: 20110614
  Receipt Date: 20031111
  Transmission Date: 20111010
  Serious: Yes (Other)
  Sender: FDA-Public Use
  Company Number: PHFR2003GB04054

PATIENT
  Sex: Female

DRUGS (2)
  1. CLOZAPINE [Suspect]
     Indication: SCHIZOPHRENIA
     Dosage: 225 MG, QD
     Route: 048
     Dates: start: 20000306
  2. AMISULPRIDE [Concomitant]
     Dosage: 100 MG, BID
     Route: 048
     Dates: start: 20030501

REACTIONS (3)
  - EMPHYSEMA [None]
  - INFLUENZA LIKE ILLNESS [None]
  - HEADACHE [None]
